FAERS Safety Report 14477886 (Version 2)
Quarter: 2018Q1

REPORT INFORMATION
  Report Type: Spontaneous
  Country: US (occurrence: US)
  Receive Date: 20180201
  Receipt Date: 20180225
  Transmission Date: 20180509
  Serious: Yes (Hospitalization, Other)
  Sender: FDA-Public Use
  Company Number: US-GLAXOSMITHKLINE-US2018014392

PATIENT
  Age: 67 Year
  Sex: Female

DRUGS (12)
  1. CLOPIDOGREL [Concomitant]
     Active Substance: CLOPIDOGREL BISULFATE
  2. SIMVASTATIN. [Concomitant]
     Active Substance: SIMVASTATIN
  3. ADVAIR DISKUS [Suspect]
     Active Substance: FLUTICASONE PROPIONATE\SALMETEROL XINAFOATE
     Indication: CHRONIC OBSTRUCTIVE PULMONARY DISEASE
     Dosage: UNK
     Route: 055
  4. ASPIRIN (BABY) [Concomitant]
     Active Substance: ASPIRIN
  5. ATENOLOL. [Concomitant]
     Active Substance: ATENOLOL
  6. ADVAIR DISKUS [Suspect]
     Active Substance: FLUTICASONE PROPIONATE\SALMETEROL XINAFOATE
     Indication: ASTHMA
  7. ANORO ELLIPTA [Suspect]
     Active Substance: UMECLIDINIUM BROMIDE\VILANTEROL TRIFENATATE
     Indication: CHRONIC OBSTRUCTIVE PULMONARY DISEASE
     Dosage: 1 PUFF(S), UNK
     Route: 055
  8. ANORO ELLIPTA [Suspect]
     Active Substance: UMECLIDINIUM BROMIDE\VILANTEROL TRIFENATATE
     Indication: ASTHMA
  9. DULOXETINE. [Concomitant]
     Active Substance: DULOXETINE
  10. ENDOCET [Concomitant]
     Active Substance: ACETAMINOPHEN\OXYCODONE HYDROCHLORIDE
  11. METOPROLOL. [Concomitant]
     Active Substance: METOPROLOL
  12. PANTOPRAZOLE [Concomitant]
     Active Substance: PANTOPRAZOLE

REACTIONS (11)
  - Pain [Recovering/Resolving]
  - Cardiac disorder [Not Recovered/Not Resolved]
  - Fall [Recovered/Resolved]
  - Lumbar vertebral fracture [Recovering/Resolving]
  - Dysgeusia [Recovered/Resolved]
  - Myocardial infarction [Recovered/Resolved]
  - Nausea [Unknown]
  - Emotional distress [Unknown]
  - Crying [Unknown]
  - Loss of consciousness [Recovered/Resolved]
  - Choking [Recovered/Resolved]

NARRATIVE: CASE EVENT DATE: 201507
